FAERS Safety Report 6760784-4 (Version None)
Quarter: 2010Q2

REPORT INFORMATION
  Report Type: 
  Country: None (occurrence: None)
  Receive Date: 20100604
  Receipt Date: 20100524
  Transmission Date: 20101027
  Serious: Yes (Hospitalization)
  Sender: FDA-Public Use
  Company Number: DSM-2010-00772

PATIENT
  Age: 77 Year
  Sex: Female

DRUGS (9)
  1. OLMESARTAN MEDOXOMIL [Suspect]
     Indication: HYPERTENSION
     Dosage: (1 IN 1 D),ORAL
     Route: 048
     Dates: start: 20091226, end: 20100201
  2. INDAPAMIDE [Suspect]
     Indication: HYPERTENSION
     Dosage: 1.5 MG (1.5 MG, 1 IN 1 D), ORAL
     Route: 048
     Dates: start: 20091226, end: 20100103
  3. DILTIAZEM HCL [Suspect]
     Indication: HYPERTENSION
     Dosage: 300 MG (300 MG,1 IN 1 D),ORAL
     Route: 048
     Dates: start: 20091226, end: 20100201
  4. ESCITALOPRAM OXALATE [Suspect]
     Indication: ANXIETY
     Dosage: (1 IN 1 D), ORAL
     Route: 048
     Dates: start: 20091201, end: 20100103
  5. AZOPT [Suspect]
     Indication: GLAUCOMA
     Dosage: 1 GET (1 GTT,1 IN 1 D), OPHTHALMIC
     Route: 047
     Dates: start: 20060101
  6. XALATAN [Suspect]
     Indication: GLAUCOMA
     Dosage: 1 GET (1 GTT,1 IN 1 D), OPHTHALMIC
     Route: 047
  7. LEXOMIL (BROMAZEPAM) (BROMAZEPAM) [Suspect]
     Indication: ANXIETY
     Dosage: 0.25 UNITS (1 IN 1 D), ORAL
     Route: 048
     Dates: end: 20100201
  8. ESOMEPRAZOLE (ESOMEPRAZOLE)(20 MILLIGRAM) (ESOMEPRAZOLE) [Suspect]
     Indication: DRUG USE FOR UNKNOWN INDICATION
     Dosage: 20 MG (20 MG,1 IN 1 D), ORAL
     Route: 048
     Dates: end: 20100114
  9. CARDIOCALM [Suspect]
     Indication: DRUG USE FOR UNKNOWN INDICATION
     Dosage: (1 IN 1 D), ORAL
     Route: 048
     Dates: end: 20091226

REACTIONS (6)
  - CONFUSIONAL STATE [None]
  - DEPRESSION [None]
  - HYPOKALAEMIA [None]
  - HYPONATRAEMIA [None]
  - VASCULITIS CEREBRAL [None]
  - VOMITING [None]
